FAERS Safety Report 8191250-X (Version None)
Quarter: 2012Q1

REPORT INFORMATION
  Report Type: 
  Country: None (occurrence: None)
  Receive Date: 20120221
  Receipt Date: 20111215
  Transmission Date: 20120608
  Serious: No
  Sender: FDA-Public Use
  Company Number: 047675

PATIENT
  Sex: Female

DRUGS (5)
  1. NEXIUM /01479303/ [Concomitant]
  2. FEXOFENADINE [Concomitant]
  3. LEVOXYL [Concomitant]
  4. LACOSAMIDE [Suspect]
     Indication: CONVULSION
     Dosage: (200 MG BID ORAL)
     Route: 048
     Dates: start: 20110601
  5. ESTRADIOL [Concomitant]

REACTIONS (4)
  - PRURITUS [None]
  - APHASIA [None]
  - GAIT DISTURBANCE [None]
  - BALANCE DISORDER [None]
